FAERS Safety Report 13314611 (Version 1)
Quarter: 2017Q1

REPORT INFORMATION
  Report Type: Spontaneous
  Country: NL (occurrence: NL)
  Receive Date: 20170309
  Receipt Date: 20170309
  Transmission Date: 20170428
  Serious: Yes (Death, Other)
  Sender: FDA-Public Use
  Company Number: NL-TEVA-747368ROM

PATIENT
  Age: 87 Year
  Sex: Female

DRUGS (4)
  1. CLOPIDOGREL [Suspect]
     Active Substance: CLOPIDOGREL BISULFATE
     Indication: TRANSIENT ISCHAEMIC ATTACK
     Dosage: 75 MILLIGRAM DAILY;
     Route: 048
     Dates: start: 20170128
  2. OXYCODON SANDOZ 20 MG [Concomitant]
  3. OMEPRAZOL MYLAN [Interacting]
     Active Substance: OMEPRAZOLE
     Indication: DYSPEPSIA
     Dosage: 20 MILLIGRAM DAILY;
     Route: 048
     Dates: start: 20070910
  4. METFORMINE MYLAN 500 MG [Concomitant]

REACTIONS (2)
  - Drug interaction [Fatal]
  - Cerebrovascular accident [Fatal]

NARRATIVE: CASE EVENT DATE: 201701
